FAERS Safety Report 26121830 (Version 1)
Quarter: 2025Q4

REPORT INFORMATION
  Report Type: Spontaneous
  Country: EU (occurrence: EU)
  Receive Date: 20251204
  Receipt Date: 20251204
  Transmission Date: 20260117
  Serious: Yes (Other)
  Sender: JOHNSON AND JOHNSON
  Company Number: EU-JNJFOC-20251164039

PATIENT
  Sex: Male
  Weight: 65 kg

DRUGS (1)
  1. RYBREVANT [Suspect]
     Active Substance: AMIVANTAMAB-VMJW
     Indication: Non-small cell lung cancer metastatic
     Dosage: LAST DOSE ADMINISTRATION- 01-NOV-2025
     Route: 065
     Dates: end: 20251030

REACTIONS (2)
  - Haematotoxicity [Unknown]
  - Skin toxicity [Unknown]
